FAERS Safety Report 20247961 (Version 6)
Quarter: 2022Q1

REPORT INFORMATION
  Report Type: Spontaneous
  Country: FR (occurrence: FR)
  Receive Date: 20211229
  Receipt Date: 20220207
  Transmission Date: 20220423
  Serious: Yes (Other)
  Sender: FDA-Public Use
  Company Number: FR-VIIV HEALTHCARE LIMITED-FR2021EME261955

PATIENT
  Sex: Female

DRUGS (4)
  1. VOCABRIA [Suspect]
     Active Substance: CABOTEGRAVIR SODIUM
     Indication: Product used for unknown indication
     Dosage: 600 MG, Z(EVERY 2 MONTHS)
     Route: 030
     Dates: start: 20210813, end: 2021
  2. RILPIVIRINE [Suspect]
     Active Substance: RILPIVIRINE
     Indication: Product used for unknown indication
     Dosage: 900 MG, Z (EVERY 2 MONTHS)
     Route: 030
     Dates: start: 20210813, end: 2021
  3. RILPIVIRINE [Suspect]
     Active Substance: RILPIVIRINE
     Indication: Product used for unknown indication
     Dosage: 600 MG (INJECTION)
     Route: 042
     Dates: start: 20200622, end: 202107
  4. CABOTEGRAVIR [Concomitant]
     Active Substance: CABOTEGRAVIR
     Indication: Product used for unknown indication
     Dosage: 400 MG (INJECTION)
     Route: 042
     Dates: start: 20200622, end: 202107

REACTIONS (3)
  - Pathogen resistance [Unknown]
  - Virologic failure [Unknown]
  - Incorrect dose administered [Unknown]

NARRATIVE: CASE EVENT DATE: 20210101
